FAERS Safety Report 18466193 (Version 8)
Quarter: 2021Q4

REPORT INFORMATION
  Report Type: Other
  Country: CA (occurrence: None)
  Receive Date: 20201104
  Receipt Date: 20211125
  Transmission Date: 20220303
  Serious: No
  Sender: FDA-Public Use
  Company Number: CA-ROCHE-2557077

PATIENT
  Sex: Female
  Weight: 110.32 kg

DRUGS (5)
  1. OCREVUS [Suspect]
     Active Substance: OCRELIZUMAB
     Indication: Relapsing-remitting multiple sclerosis
     Dosage: 300 MG AT DAY 0 AND 14, THEN 600 MG EVERY 6 MONTH
     Route: 042
     Dates: start: 20200113
  2. KESIMPTA [Concomitant]
     Active Substance: OFATUMUMAB
  3. COPAXONE [Concomitant]
     Active Substance: GLATIRAMER ACETATE
  4. COVID-19 VACCINE [Concomitant]
     Dosage: FIRST DOSE
     Dates: start: 20210429
  5. COVID-19 VACCINE [Concomitant]
     Dosage: SECOND DOSE
     Dates: start: 20210531

REACTIONS (4)
  - Maternal exposure before pregnancy [Unknown]
  - Morning sickness [Not Recovered/Not Resolved]
  - Gestational hypertension [Recovered/Resolved]
  - Fungal infection [Recovered/Resolved]
